FAERS Safety Report 23685220 (Version 1)
Quarter: 2024Q1

REPORT INFORMATION
  Report Type: Spontaneous
  Country: US (occurrence: US)
  Receive Date: 20240329
  Receipt Date: 20240329
  Transmission Date: 20240409
  Serious: No
  Sender: FDA-Public Use
  Company Number: US-SA-SAC20240323000074

PATIENT
  Age: 34 Year
  Sex: Female

DRUGS (1)
  1. DUPIXENT [Suspect]
     Active Substance: DUPILUMAB
     Indication: Dermatitis
     Dosage: 300 MG, QOW
     Route: 058

REACTIONS (6)
  - Weight increased [Unknown]
  - Abdominal pain upper [Unknown]
  - Oligomenorrhoea [Unknown]
  - Diarrhoea [Unknown]
  - Skin exfoliation [Unknown]
  - Product use in unapproved indication [Unknown]
